FAERS Safety Report 4531621-3 (Version None)
Quarter: 2004Q4

REPORT INFORMATION
  Report Type: 
  Country: None (occurrence: None)
  Receive Date: 20041220
  Receipt Date: 20041208
  Transmission Date: 20050328
  Serious: Yes (Other)
  Sender: FDA-Public Use
  Company Number: 200419484US

PATIENT
  Sex: Female

DRUGS (1)
  1. ARAVA [Suspect]

REACTIONS (3)
  - COLONIC OBSTRUCTION [None]
  - ILEUS PARALYTIC [None]
  - OESOPHAGEAL DISORDER [None]
